FAERS Safety Report 7884294-6 (Version None)
Quarter: 2011Q4

REPORT INFORMATION
  Report Type: 
  Country: None (occurrence: None)
  Receive Date: 20111102
  Receipt Date: 20111026
  Transmission Date: 20120403
  Serious: Yes (Hospitalization)
  Sender: FDA-Public Use
  Company Number: US-BRISTOL-MYERS SQUIBB COMPANY-16198020

PATIENT
  Age: 43 Year
  Sex: Male
  Weight: 114 kg

DRUGS (11)
  1. BACLOFEN [Suspect]
  2. HYDROCHLOROTHIAZIDE [Concomitant]
  3. COREG [Concomitant]
  4. COUMADIN [Suspect]
  5. OMEPRAZOLE [Concomitant]
  6. REBIF [Suspect]
     Indication: MULTIPLE SCLEROSIS
     Route: 058
     Dates: start: 20101006
  7. DECADRON [Concomitant]
  8. POTASSIUM [Concomitant]
  9. CAPTOPRIL [Concomitant]
  10. COLACE [Concomitant]
  11. VITAMIN D [Concomitant]

REACTIONS (6)
  - DEMENTIA [None]
  - MULTIPLE SCLEROSIS [None]
  - GASTROINTESTINAL HAEMORRHAGE [None]
  - NAUSEA [None]
  - GASTRIC ULCER HAEMORRHAGE [None]
  - DEHYDRATION [None]
